FAERS Safety Report 8022547-1 (Version None)
Quarter: 2012Q1

REPORT INFORMATION
  Report Type: 
  Country: None (occurrence: None)
  Receive Date: 20120104
  Receipt Date: 20110623
  Transmission Date: 20120608
  Serious: Yes (Hospitalization)
  Sender: FDA-Public Use
  Company Number: US-GLAXOSMITHKLINE-A0934683A

PATIENT
  Age: 55 Year
  Sex: Male

DRUGS (1)
  1. AVANDIA [Suspect]
     Indication: DIABETES MELLITUS
     Route: 048
     Dates: start: 20000601, end: 20070401

REACTIONS (5)
  - HEART RATE IRREGULAR [None]
  - CARDIOMYOPATHY [None]
  - CARDIAC DISORDER [None]
  - ATRIAL FIBRILLATION [None]
  - CATHETERISATION CARDIAC [None]
